FAERS Safety Report 17709869 (Version 2)
Quarter: 2020Q2

REPORT INFORMATION
  Report Type: Spontaneous
  Country: US (occurrence: US)
  Receive Date: 20200427
  Receipt Date: 20200507
  Transmission Date: 20200714
  Serious: Yes (Hospitalization)
  Sender: FDA-Public Use
  Company Number: US-TEVA-2020-US-1227989

PATIENT
  Age: 50 Year
  Sex: Male

DRUGS (2)
  1. AMANTADINE. [Suspect]
     Active Substance: AMANTADINE HYDROCHLORIDE
     Indication: PARKINSON^S DISEASE
     Dosage: 300 MILLIGRAM DAILY;
     Route: 065
  2. AMANTADINE. [Suspect]
     Active Substance: AMANTADINE HYDROCHLORIDE
     Dosage: 400 MILLIGRAM DAILY;
     Route: 065

REACTIONS (6)
  - Acute psychosis [Recovered/Resolved]
  - Gait disturbance [Recovering/Resolving]
  - Fall [Recovered/Resolved]
  - Encephalopathy [Recovered/Resolved]
  - Withdrawal syndrome [Recovered/Resolved]
  - Toxicity to various agents [Recovered/Resolved]
